FAERS Safety Report 5029833-8 (Version None)
Quarter: 2006Q2

REPORT INFORMATION
  Report Type: 
  Country: None (occurrence: None)
  Receive Date: 20060614
  Receipt Date: 20060607
  Transmission Date: 20061013
  Serious: Yes (Hospitalization)
  Sender: FDA-Public Use
  Company Number: MEDI-0004604

PATIENT
  Age: 59 Year
  Sex: Male
  Weight: 67.586 kg

DRUGS (13)
  1. ETHYOL [Suspect]
     Indication: RADIOTHERAPY
     Dosage: 5 IN  1 WK, SUBCUTANEOUS
     Route: 058
     Dates: start: 20060424, end: 20060508
  2. RADIATION THERAPY [Concomitant]
  3. CISPLATIN [Concomitant]
  4. FLUOROURACIL [Concomitant]
  5. HYDROCODONE BITARTRATE [Concomitant]
  6. DURAGESIC-100 [Concomitant]
  7. COLACE (DOCUSATE SODIUM) [Concomitant]
  8. LAMISIL AT (TERBINAFINE HYDROCHLORIDE) [Concomitant]
  9. LORTAB 7.5/500 (PARACETAMOL, HYDROCODONE BITARTRATE) [Concomitant]
  10. MAGIC MOUTHWASH [Concomitant]
  11. ACETAMINOPHEN [Concomitant]
  12. PROMETHAZINE [Concomitant]
  13. DIFLUCAN [Concomitant]

REACTIONS (9)
  - CHILLS [None]
  - CYANOSIS [None]
  - HYPOTENSION [None]
  - NAUSEA [None]
  - PYREXIA [None]
  - RASH ERYTHEMATOUS [None]
  - TINEA PEDIS [None]
  - VOMITING [None]
  - WHITE BLOOD CELL COUNT DECREASED [None]
